FAERS Safety Report 6265720-5 (Version None)
Quarter: 2009Q3

REPORT INFORMATION
  Report Type: 
  Country: None (occurrence: None)
  Receive Date: 20090713
  Receipt Date: 20090707
  Transmission Date: 20100115
  Serious: Yes (Hospitalization)
  Sender: FDA-Public Use
  Company Number: DE-BAYER-200924481GPV

PATIENT
  Age: 62 Year
  Sex: Male
  Weight: 85 kg

DRUGS (8)
  1. ALEMTUZUMAB [Suspect]
     Indication: CHRONIC LYMPHOCYTIC LEUKAEMIA
     Dosage: CYCLE 1
     Route: 058
     Dates: start: 20090605
  2. DEXAMETHASONE [Suspect]
     Indication: CHRONIC LYMPHOCYTIC LEUKAEMIA
     Route: 048
     Dates: start: 20090605
  3. NEULASTA [Suspect]
     Indication: CHRONIC LYMPHOCYTIC LEUKAEMIA
     Route: 058
     Dates: start: 20090612
  4. NEULASTA [Suspect]
     Route: 058
     Dates: start: 20090704
  5. NEULASTA [Suspect]
     Route: 058
     Dates: start: 20090605
  6. LANTAREL [Concomitant]
     Indication: PSORIATIC ARTHROPATHY
     Dosage: TOTAL DAILY DOSE: 15 MG
     Route: 048
     Dates: end: 20090501
  7. FOLSAN [Concomitant]
  8. VALTREX [Concomitant]
     Dosage: TOTAL DAILY DOSE: 2 DF
     Route: 048

REACTIONS (5)
  - C-REACTIVE PROTEIN INCREASED [None]
  - CYTOMEGALOVIRUS INFECTION [None]
  - DIARRHOEA [None]
  - PSORIASIS [None]
  - PYREXIA [None]
